FAERS Safety Report 7353941-X (Version None)
Quarter: 2011Q1

REPORT INFORMATION
  Report Type: 
  Country: None (occurrence: None)
  Receive Date: 20110315
  Receipt Date: 20110314
  Transmission Date: 20110831
  Serious: Yes (Hospitalization)
  Sender: FDA-Public Use
  Company Number: BR-ABBOTT-10P-020-0691453-00

PATIENT
  Sex: Female
  Weight: 95 kg

DRUGS (4)
  1. ALPRAZOLAM [Concomitant]
     Indication: INSOMNIA
     Route: 048
     Dates: start: 20080101
  2. HUMIRA [Suspect]
     Indication: RHEUMATOID ARTHRITIS
     Route: 058
     Dates: start: 20100901
  3. LIVIAL [Concomitant]
     Indication: MENOPAUSE
     Route: 048
     Dates: start: 20020101
  4. ACTIVELLE [Suspect]
     Indication: PRODUCT USED FOR UNKNOWN INDICATION

REACTIONS (6)
  - THROMBOSIS [None]
  - ABDOMINAL PAIN LOWER [None]
  - OVARIAN ENLARGEMENT [None]
  - HAEMATOMA [None]
  - JOINT SWELLING [None]
  - VAGINAL HAEMORRHAGE [None]
